FAERS Safety Report 6982943-8 (Version None)
Quarter: 2010Q3

REPORT INFORMATION
  Report Type: 
  Country: None (occurrence: None)
  Receive Date: 20100914
  Receipt Date: 20100502
  Transmission Date: 20110219
  Serious: Yes (Other)
  Sender: FDA-Public Use
  Company Number: US-PFIZER INC-2010055136

PATIENT
  Sex: Male
  Weight: 94.785 kg

DRUGS (6)
  1. LYRICA [Suspect]
     Indication: NEURALGIA
     Dosage: 75 MG, 2X/DAY
     Route: 048
     Dates: start: 20100429
  2. ALLOPURINOL [Concomitant]
     Indication: GOUT
     Dosage: 300 MG, AS NEEDED
     Route: 048
  3. ISOSORBIDE [Concomitant]
     Indication: CARDIAC DISORDER
     Dosage: 120 MG, 1X/DAY
     Route: 048
  4. SOTALOL [Concomitant]
     Indication: CARDIAC DISORDER
     Dosage: 120 MG, 2X/DAY
  5. METFORMIN HYDROCHLORIDE [Concomitant]
     Indication: DIABETES MELLITUS
     Dosage: 500 MG, 2X/DAY
     Route: 048
  6. COREG [Concomitant]
     Indication: CARDIAC DISORDER
     Dosage: UNK

REACTIONS (1)
  - MUSCULAR WEAKNESS [None]
